FAERS Safety Report 9250617 (Version 2)
Quarter: 2013Q2

REPORT INFORMATION
  Report Type: Spontaneous
  Country: FR (occurrence: FR)
  Receive Date: 20130424
  Receipt Date: 20130503
  Transmission Date: 20140414
  Serious: Yes (Hospitalization)
  Sender: FDA-Public Use
  Company Number: FR-SANOFI-AVENTIS-2013SA039829

PATIENT
  Age: 88 Year
  Sex: Female

DRUGS (12)
  1. LASILIX [Suspect]
     Indication: PRODUCT USED FOR UNKNOWN INDICATION
     Route: 048
     Dates: end: 20121116
  2. XARELTO [Suspect]
     Indication: ATRIAL FIBRILLATION
     Route: 048
     Dates: start: 20121107, end: 20121116
  3. XARELTO [Suspect]
     Indication: ATRIAL FIBRILLATION
     Route: 048
     Dates: start: 20121120, end: 20130314
  4. BISOPROLOL [Concomitant]
     Route: 048
  5. DIFFU K [Concomitant]
     Route: 048
  6. INEXIUM [Concomitant]
     Route: 048
  7. RISPERDAL [Concomitant]
     Route: 048
  8. PARKINANE [Concomitant]
     Route: 048
  9. HALDOL [Concomitant]
     Route: 048
  10. EUPANTOL [Concomitant]
  11. TRANSIPEG [Concomitant]
  12. PARACETAMOL [Concomitant]

REACTIONS (5)
  - Acute prerenal failure [Recovered/Resolved]
  - Dehydration [Recovered/Resolved]
  - Blood creatinine increased [Recovered/Resolved]
  - Blood urea increased [Recovered/Resolved]
  - Creatinine renal clearance decreased [Recovered/Resolved]
